FAERS Safety Report 5564073-5 (Version None)
Quarter: 2007Q4

REPORT INFORMATION
  Report Type: 
  Country: None (occurrence: None)
  Receive Date: 20071217
  Receipt Date: 20071203
  Transmission Date: 20080405
  Serious: Yes (Hospitalization, Other)
  Sender: FDA-Public Use
  Company Number: GB-RANBAXY-2007RR-11860

PATIENT

DRUGS (6)
  1. FUROSEMIDE TABLETS BP 40MG [Suspect]
     Dosage: 40 MG, UNK
     Route: 048
     Dates: end: 20071124
  2. RAMIPRIL 10 MG CAPSULES [Suspect]
     Dosage: 10 MG, UNK
     Route: 048
  3. ASPIRIN TABLETS BP 300MG [Concomitant]
     Dosage: 75 MG, UNK
     Route: 048
  4. ATENOLOL TABLETS BP 100MG [Concomitant]
     Dosage: 25 MG, UNK
     Route: 048
  5. LEVOTHYROXINE SODIUM [Concomitant]
     Dosage: 50 UG, UNK
     Route: 048
  6. SENNA [Concomitant]
     Dosage: 2 DF, UNK
     Route: 048

REACTIONS (2)
  - DEHYDRATION [None]
  - RENAL FAILURE ACUTE [None]
